FAERS Safety Report 9238765 (Version 2)
Quarter: 2014Q1

REPORT INFORMATION
  Report Type: Spontaneous
  Country: US (occurrence: None)
  Receive Date: 20121113
  Receipt Date: 20131226
  Transmission Date: 20141002
  Serious: No
  Sender: FDA-Public Use
  Company Number: PHEH2012US016752

PATIENT
  Age: 67 Year
  Sex: Male

DRUGS (10)
  1. ARCAPTA [Suspect]
     Indication: CHRONIC OBSTRUCTIVE PULMONARY DISEASE
     Dosage: 1 UNK, QD, INHALATION.
     Route: 055
  2. SPIRIVA (TIOTROPIUM BROMIDE) [Concomitant]
  3. PRO AIR INHALER [Concomitant]
  4. OMEPRAZOLE (OMEPRAZOLE) [Concomitant]
  5. LISINOPRIL (LISINOPRIL) [Concomitant]
  6. PREDNISONE (PREDNISONE) [Concomitant]
  7. METOPROLOL (METOPROLOL) [Concomitant]
  8. HYDROCHLOROTHIAZIDE (HYDROCHLOROTHIAZIDE) [Concomitant]
  9. TRAZODONE (TRAZODONE) [Concomitant]
  10. LORAZEPAM (LORAZEPAM) [Concomitant]

REACTIONS (1)
  - Inappropriate schedule of drug administration [None]
